FAERS Safety Report 10218439 (Version 1)
Quarter: 2014Q2

REPORT INFORMATION
  Report Type: Report from Study
  Country: NL (occurrence: NL)
  Receive Date: 20140605
  Receipt Date: 20140605
  Transmission Date: 20141212
  Serious: Yes (Hospitalization)
  Sender: FDA-Public Use
  Company Number: PHHY2014NL067427

PATIENT
  Age: 35 Year
  Sex: Female

DRUGS (6)
  1. SANDOSTATIN LAR [Suspect]
     Indication: HYPOGLYCAEMIA
     Dosage: 20 MG,( ONCE PER 3 WEEKS)
     Route: 030
  2. SANDOSTATIN LAR [Suspect]
     Indication: OFF LABEL USE
  3. CHOLECALCIFEROL [Concomitant]
     Dosage: 50000 IU/ML, 1 ML TWICE PER WEEK
     Route: 065
  4. HYDROCOBAMINE [Concomitant]
     Dosage: 1000 MG/2 ML, ONCE PER 6 WEEKS
     Route: 065
  5. OMEPRAZOLE [Concomitant]
     Dosage: 40 MG, 1DD1
     Route: 065
  6. TRAMADOL [Concomitant]
     Dosage: 50 MG, PRN
     Route: 065

REACTIONS (1)
  - Palpitations [Recovering/Resolving]
